FAERS Safety Report 5906996-0 (Version None)
Quarter: 2008Q4

REPORT INFORMATION
  Report Type: 
  Country: None (occurrence: None)
  Receive Date: 20081002
  Receipt Date: 20081002
  Transmission Date: 20090506
  Serious: Yes (Other)
  Sender: FDA-Public Use
  Company Number: None

PATIENT
  Age: 37 Year
  Sex: Female
  Weight: 113.3993 kg

DRUGS (1)
  1. MIRENA [Suspect]
     Indication: CONTRACEPTION
     Dates: start: 20050901, end: 20080924

REACTIONS (4)
  - ABDOMINAL PAIN [None]
  - HORMONE LEVEL ABNORMAL [None]
  - IUCD COMPLICATION [None]
  - URINARY TRACT INFECTION [None]
